FAERS Safety Report 8544393-2 (Version None)
Quarter: 2012Q3

REPORT INFORMATION
  Report Type: 
  Country: None (occurrence: None)
  Receive Date: 20120727
  Receipt Date: 20120717
  Transmission Date: 20120928
  Serious: Yes (Hospitalization, Other)
  Sender: FDA-Public Use
  Company Number: US-BAYER-2012-032907

PATIENT
  Age: 45 Year
  Sex: Female
  Weight: 95 kg

DRUGS (10)
  1. ATENENTOL [Concomitant]
     Indication: HEADACHE
     Dosage: 25 MG, DAILY
     Route: 048
     Dates: start: 20000101
  2. ATENENTOL [Concomitant]
     Dosage: UNK
     Dates: start: 20031217
  3. ANTIDEPRESSANTS [Concomitant]
     Indication: DEPRESSION
     Dosage: UNK
     Dates: start: 19950101
  4. PRILOSEC [Concomitant]
     Indication: GASTROOESOPHAGEAL REFLUX DISEASE
     Dosage: 20 MG, HS
     Route: 048
     Dates: start: 20000101
  5. ATENENTOL [Concomitant]
     Dosage: UNK
     Dates: start: 20031116
  6. ASPIRIN [Concomitant]
     Indication: HEADACHE
     Dosage: DAILY
  7. YASMIN [Suspect]
     Indication: PREMENSTRUAL SYNDROME
     Dosage: UNK
     Dates: start: 20031101, end: 20040125
  8. PRILOSEC [Concomitant]
     Dosage: UNK
     Dates: start: 20031116
  9. PENICILLIN VK [Concomitant]
     Indication: STREPTOBACILLUS INFECTION
     Dosage: 500 MG, BID FOR 10 DAYS
     Dates: start: 20031116
  10. ZOLOFT [Concomitant]
     Indication: PREMENSTRUAL SYNDROME
     Dosage: 100 MG, BID
     Route: 048
     Dates: start: 20031116

REACTIONS (10)
  - PULMONARY EMBOLISM [None]
  - ANXIETY [None]
  - POST-TRAUMATIC STRESS DISORDER [None]
  - CHEST PAIN [None]
  - EMOTIONAL DISTRESS [None]
  - PAIN [None]
  - LUNG DISORDER [None]
  - INJURY [None]
  - FEAR [None]
  - DYSPNOEA [None]
